FAERS Safety Report 8028163-X (Version None)
Quarter: 2012Q1

REPORT INFORMATION
  Report Type: 
  Country: None (occurrence: None)
  Receive Date: 20120104
  Receipt Date: 20111227
  Transmission Date: 20120608
  Serious: Yes (Hospitalization)
  Sender: FDA-Public Use
  Company Number: DKLU1075647

PATIENT
  Age: 2 Year
  Sex: Female

DRUGS (2)
  1. ZONEGRAN [Concomitant]
  2. SABRIL [Suspect]
     Indication: PRODUCT USED FOR UNKNOWN INDICATION
     Dosage: 750 MG MILLIGRAM(S), 3 IN 1 D

REACTIONS (3)
  - RESPIRATORY SYNCYTIAL VIRUS INFECTION [None]
  - DRUG INEFFECTIVE [None]
  - RHINOVIRUS INFECTION [None]
